FAERS Safety Report 10028835 (Version 1)
Quarter: 2014Q1

REPORT INFORMATION
  Report Type: Spontaneous
  Country: GB (occurrence: GB)
  Receive Date: 20140321
  Receipt Date: 20140321
  Transmission Date: 20141002
  Serious: Yes (Hospitalization, Other)
  Sender: FDA-Public Use
  Company Number: GB-BAYER-2014-039626

PATIENT
  Age: 57 Year
  Sex: Male

DRUGS (14)
  1. ACETYLSALICYLIC ACID (} 100 MG) [Suspect]
  2. WARFARIN [Interacting]
     Indication: DEEP VEIN THROMBOSIS
     Dosage: 10 MG
  3. WARFARIN [Interacting]
     Indication: DEEP VEIN THROMBOSIS
     Dosage: 5 MG
  4. QUININE [Concomitant]
  5. RAMIPRIL [Concomitant]
  6. CARBOCISTEINE [Concomitant]
  7. SIMVASTATIN [Concomitant]
  8. DILTIAZEM [Concomitant]
  9. BUDESONIDE [Concomitant]
  10. FORMOTEROL [Concomitant]
  11. TIOTROPIUM [Concomitant]
  12. SALBUTAMOL [Concomitant]
     Route: 045
  13. CO AMOXICLAV [Concomitant]
     Indication: INFECTIVE EXACERBATION OF CHRONIC OBSTRUCTIVE AIRWAYS DISEASE
  14. PREDNISOLONE [Concomitant]
     Indication: INFECTIVE EXACERBATION OF CHRONIC OBSTRUCTIVE AIRWAYS DISEASE

REACTIONS (5)
  - Compartment syndrome [Recovering/Resolving]
  - Pulmonary embolism [None]
  - Drug interaction [None]
  - Drug ineffective [None]
  - Paraesthesia [Recovering/Resolving]
